FAERS Safety Report 24898161 (Version 2)
Quarter: 2025Q4

REPORT INFORMATION
  Report Type: Other
  Country: GB (occurrence: GB)
  Receive Date: 20250129
  Receipt Date: 20251021
  Transmission Date: 20260117
  Serious: Yes (Hospitalization, Other)
  Sender: ASPEN
  Company Number: GB-ADVANZ PHARMA-202501000144

PATIENT

DRUGS (10)
  1. DEXAMETHASONE [Suspect]
     Active Substance: DEXAMETHASONE
     Indication: Plasma cell myeloma
     Dosage: 40 MG (TABLET), WEEKLY
     Route: 048
     Dates: start: 20241203
  2. INOBRODIB [Suspect]
     Active Substance: INOBRODIB
     Indication: Plasma cell myeloma
     Dosage: 30 MG, BID (4 DAYS ON AND 3 DAYS OFF)
     Route: 048
     Dates: start: 20241203
  3. POMALIDOMIDE [Suspect]
     Active Substance: POMALIDOMIDE
     Indication: Plasma cell myeloma
     Dosage: 4 MG (D1-D21 IN CYCLE (ALREADY STOPPED D15))
     Route: 048
     Dates: start: 20241203, end: 20241217
  4. POMALIDOMIDE [Suspect]
     Active Substance: POMALIDOMIDE
     Dosage: 4 MG (CAPSULE RESTARTED)
     Route: 048
     Dates: start: 20250108
  5. TRELEGY ELLIPTA [Concomitant]
     Active Substance: FLUTICASONE FUROATE\UMECLIDINIUM BROMIDE\VILANTEROL TRIFENATATE
     Indication: Product used for unknown indication
     Dosage: UNK (D1)
     Route: 065
     Dates: start: 20220525
  6. RAMIPRIL [Concomitant]
     Active Substance: RAMIPRIL
     Indication: Product used for unknown indication
     Dosage: UNK (D1)
     Route: 065
     Dates: start: 20220301
  7. BISOPROLOL [Concomitant]
     Active Substance: BISOPROLOL
     Indication: Product used for unknown indication
     Dosage: 1.25 MILLIGRAM
     Route: 065
     Dates: start: 20181101
  8. PREDNISOLONE [Concomitant]
     Active Substance: PREDNISOLONE
     Indication: Product used for unknown indication
     Dosage: 30 MG (D1)
     Route: 065
     Dates: start: 20241212
  9. COTRIMOXAZOLE [Concomitant]
     Active Substance: SULFAMETHOXAZOLE\TRIMETHOPRIM
     Indication: Product used for unknown indication
     Dosage: RESTARTED
     Route: 065
  10. FUROSEMIDE [Concomitant]
     Active Substance: FUROSEMIDE
     Indication: Product used for unknown indication
     Dosage: STOPPED
     Route: 065

REACTIONS (3)
  - Acute kidney injury [Recovered/Resolved]
  - Tumour lysis syndrome [Recovered/Resolved]
  - Cytopenia [Unknown]

NARRATIVE: CASE EVENT DATE: 20241223
